FAERS Safety Report 10363755 (Version 1)
Quarter: 2014Q3

REPORT INFORMATION
  Report Type: Spontaneous
  Country: US (occurrence: US)
  Receive Date: 20140805
  Receipt Date: 20140805
  Transmission Date: 20150326
  Serious: Yes (Death, Other)
  Sender: FDA-Public Use
  Company Number: US-BAXTER-2014BAX043721

PATIENT
  Age: 52 Year
  Sex: Male

DRUGS (4)
  1. LINEZOLID. [Suspect]
     Active Substance: LINEZOLID
     Indication: PRODUCT USED FOR UNKNOWN INDICATION
     Route: 042
  2. DAPTOMYCIN [Suspect]
     Active Substance: DAPTOMYCIN
     Indication: PRODUCT USED FOR UNKNOWN INDICATION
     Route: 042
  3. DIANEAL PD-1 WITH DEXTROSE [Suspect]
     Active Substance: CALCIUM CHLORIDE\DEXTROSE\MAGNESIUM CHLORIDE\SODIUM CHLORIDE\SODIUM LACTATE
     Indication: PERITONEAL DIALYSIS
     Route: 033
  4. HEPARIN [Suspect]
     Active Substance: HEPARIN SODIUM
     Dosage: 1000 UNITS
     Route: 042

REACTIONS (3)
  - Respiratory failure [Fatal]
  - Peritonitis [Recovered/Resolved]
  - Enterococcal infection [Recovered/Resolved]
